FAERS Safety Report 25892787 (Version 1)
Quarter: 2025Q4

REPORT INFORMATION
  Report Type: Spontaneous
  Country: EU (occurrence: EU)
  Receive Date: 20251007
  Receipt Date: 20251007
  Transmission Date: 20260117
  Serious: Yes (Other)
  Sender: JOHNSON AND JOHNSON
  Company Number: EU-BAYER-2025A131791

PATIENT
  Sex: Female

DRUGS (1)
  1. XARELTO [Suspect]
     Active Substance: RIVAROXABAN
     Indication: Atrial fibrillation
     Dosage: 20 MG
     Route: 048
     Dates: start: 2017

REACTIONS (5)
  - Procedural complication [Unknown]
  - Procedural haemorrhage [Unknown]
  - Cardiac aneurysm [Unknown]
  - Cardiac pacemaker insertion [Unknown]
  - Cardiovascular evaluation [Unknown]

NARRATIVE: CASE EVENT DATE: 20210101
